FAERS Safety Report 23746185 (Version 3)
Quarter: 2024Q2

REPORT INFORMATION
  Report Type: Spontaneous
  Country: US (occurrence: US)
  Receive Date: 20240416
  Receipt Date: 20240514
  Transmission Date: 20240716
  Serious: No
  Sender: FDA-Public Use
  Company Number: US-BRISTOL-MYERS SQUIBB COMPANY-2024-058798

PATIENT
  Age: 71 Year
  Sex: Female

DRUGS (1)
  1. LENALIDOMIDE [Suspect]
     Active Substance: LENALIDOMIDE
     Indication: Osteoporosis
     Route: 048
     Dates: start: 20240401

REACTIONS (12)
  - Escherichia urinary tract infection [Unknown]
  - Nausea [Unknown]
  - Abdominal pain upper [Unknown]
  - Dizziness [Unknown]
  - Tremor [Unknown]
  - Off label use [Unknown]
  - Dehydration [Unknown]
  - Decreased appetite [Unknown]
  - Headache [Unknown]
  - Tooth disorder [Unknown]
  - Brain fog [Unknown]
  - Malaise [Recovering/Resolving]
